FAERS Safety Report 16418373 (Version 1)
Quarter: 2019Q2

REPORT INFORMATION
  Report Type: Spontaneous
  Country: JP (occurrence: JP)
  Receive Date: 20190612
  Receipt Date: 20190612
  Transmission Date: 20190711
  Serious: Yes (Other)
  Sender: FDA-Public Use
  Company Number: JP-TEVA-2019-JP-003413J

PATIENT
  Sex: Female

DRUGS (2)
  1. WARFARIN K TABLET 1MG TEVA [Suspect]
     Active Substance: WARFARIN
     Dosage: 1 DOSAGE FORMS DAILY;
     Route: 048
  2. WARFARIN K TABLET 1MG TEVA [Suspect]
     Active Substance: WARFARIN
     Indication: PRODUCT USED FOR UNKNOWN INDICATION
     Dosage: .5 DOSAGE FORMS DAILY;
     Route: 048

REACTIONS (2)
  - Retinal vascular occlusion [Unknown]
  - Blindness [Unknown]
